FAERS Safety Report 19144182 (Version 2)
Quarter: 2021Q2

REPORT INFORMATION
  Report Type: Report from Study
  Country: JP (occurrence: JP)
  Receive Date: 20210416
  Receipt Date: 20210527
  Transmission Date: 20210717
  Serious: Yes (Death, Hospitalization)
  Sender: FDA-Public Use
  Company Number: JP-JNJFOC-A-CH2019-191800

PATIENT
  Age: 68 Year
  Sex: Female
  Weight: 54.4 kg

DRUGS (23)
  1. UPTRAVI [Suspect]
     Active Substance: SELEXIPAG
     Dosage: 0.1 MG, BID
     Route: 048
     Dates: start: 20181026
  2. RISUMIC [Concomitant]
     Active Substance: AMEZINIUM METILSULFATE
  3. SHAKUYAKUKANZOTO [Concomitant]
     Active Substance: HERBALS
  4. MAINTATE [Concomitant]
     Active Substance: BISOPROLOL FUMARATE
  5. OPSUMIT [Suspect]
     Active Substance: MACITENTAN
     Indication: PULMONARY ARTERIAL HYPERTENSION
     Dosage: 5 MG, QD
     Route: 048
     Dates: start: 20170220, end: 20181107
  6. REGPARA [Concomitant]
     Active Substance: CINACALCET HYDROCHLORIDE
  7. RENAGEL [Concomitant]
     Active Substance: SEVELAMER HYDROCHLORIDE
  8. DOPS [Concomitant]
     Active Substance: DROXIDOPA
  9. PROMAC [Concomitant]
     Active Substance: NITROFURANTOIN
  10. OXYGEN. [Concomitant]
     Active Substance: OXYGEN
  11. WARFARIN [Concomitant]
     Active Substance: WARFARIN
  12. TERNELIN [Concomitant]
     Active Substance: TIZANIDINE
  13. REVATIO [Concomitant]
     Active Substance: SILDENAFIL CITRATE
  14. FEBURIC [Concomitant]
     Active Substance: FEBUXOSTAT
  15. NAUZELIN [Concomitant]
     Active Substance: DOMPERIDONE
  16. FOSRENOL [Concomitant]
     Active Substance: LANTHANUM CARBONATE
  17. OPSUMIT [Suspect]
     Active Substance: MACITENTAN
     Dosage: 10 MG, QD
     Route: 048
     Dates: start: 20181108, end: 20190520
  18. METHYCOBAL [Concomitant]
     Active Substance: METHYLCOBALAMIN
  19. NORVASC [Concomitant]
     Active Substance: AMLODIPINE BESYLATE
  20. ALLEGRA [Concomitant]
     Active Substance: FEXOFENADINE HYDROCHLORIDE
  21. UPTRAVI [Suspect]
     Active Substance: SELEXIPAG
     Indication: PULMONARY ARTERIAL HYPERTENSION
     Dosage: 0.2 MG, BID
     Route: 048
     Dates: start: 20181106, end: 20181110
  22. ACINON [Concomitant]
     Active Substance: NIZATIDINE
  23. RIONA [Concomitant]
     Active Substance: FERRIC CITRATE ANHYDROUS

REACTIONS (4)
  - Hypoxia [Fatal]
  - Respiratory failure [Fatal]
  - Rash [Recovered/Resolved]
  - Pneumonia [Fatal]

NARRATIVE: CASE EVENT DATE: 20181110
